FAERS Safety Report 19072174 (Version 1)
Quarter: 2021Q1

REPORT INFORMATION
  Report Type: Spontaneous
  Country: US (occurrence: US)
  Receive Date: 20210329
  Receipt Date: 20210329
  Transmission Date: 20210420
  Serious: Yes (Death)
  Sender: FDA-Public Use
  Company Number: None

PATIENT
  Age: 15 Year
  Sex: Male

DRUGS (2)
  1. N/A [Concomitant]
     Active Substance: UNSPECIFIED INGREDIENT
  2. NEULASTA [Suspect]
     Active Substance: PEGFILGRASTIM
     Indication: PRODUCT USED FOR UNKNOWN INDICATION
     Dosage: ?          OTHER FREQUENCY:ONCE EVERY 21 DAY;?
     Route: 058
     Dates: start: 20210129

REACTIONS (1)
  - Death [None]
